FAERS Safety Report 7278541-1 (Version None)
Quarter: 2011Q1

REPORT INFORMATION
  Report Type: 
  Country: None (occurrence: None)
  Receive Date: 20110202
  Receipt Date: 20110202
  Transmission Date: 20110831
  Serious: Yes (Hospitalization)
  Sender: FDA-Public Use
  Company Number: None

PATIENT
  Sex: Male

DRUGS (2)
  1. TACROLIMUS [Suspect]
  2. VORICONAZOLE [Suspect]

REACTIONS (3)
  - HEADACHE [None]
  - NAUSEA [None]
  - TREMOR [None]
